FAERS Safety Report 25807252 (Version 2)
Quarter: 2025Q3

REPORT INFORMATION
  Report Type: Spontaneous
  Country: EU (occurrence: EU)
  Receive Date: 20250916
  Receipt Date: 20250925
  Transmission Date: 20251021
  Serious: Yes (Death, Hospitalization)
  Sender: NOVO NORDISK
  Company Number: EU-NOVOPROD-1517577

PATIENT
  Age: 75 Year
  Sex: Female

DRUGS (1)
  1. OZEMPIC [Suspect]
     Active Substance: SEMAGLUTIDE
     Indication: Weight control

REACTIONS (2)
  - Pancreatitis [Fatal]
  - Product use in unapproved indication [Unknown]
